FAERS Safety Report 11683085 (Version 1)
Quarter: 2015Q4

REPORT INFORMATION
  Report Type: Spontaneous
  Country: US (occurrence: US)
  Receive Date: 20151029
  Receipt Date: 20151029
  Transmission Date: 20160304
  Serious: No
  Sender: FDA-Public Use
  Company Number: US-009507513-1510USA002327

PATIENT
  Sex: Female

DRUGS (1)
  1. ZONTIVITY [Suspect]
     Active Substance: VORAPAXAR SULFATE
     Dosage: UNK
     Route: 048

REACTIONS (1)
  - Transient ischaemic attack [Recovering/Resolving]

NARRATIVE: CASE EVENT DATE: 20151003
